FAERS Safety Report 5559573-8 (Version None)
Quarter: 2007Q4

REPORT INFORMATION
  Report Type: 
  Country: None (occurrence: None)
  Receive Date: 20071214
  Receipt Date: 20071022
  Transmission Date: 20080405
  Serious: No
  Sender: FDA-Public Use
  Company Number: US-ABBOTT-07P-163-0420038-00

PATIENT
  Sex: Male
  Weight: 74.91 kg

DRUGS (4)
  1. HUMIRA [Suspect]
     Indication: CROHN'S DISEASE
     Route: 058
     Dates: start: 20070828
  2. HUMIRA [Suspect]
  3. CIPROFLOXACIN [Concomitant]
     Indication: PROPHYLAXIS
     Route: 048
  4. CIPROFLOXACIN [Concomitant]
     Indication: POUCHITIS

REACTIONS (4)
  - RASH ERYTHEMATOUS [None]
  - RASH PRURITIC [None]
  - SINUSITIS [None]
  - SWEAT DISCOLOURATION [None]
